FAERS Safety Report 8915203 (Version 1)
Quarter: 2012Q4

REPORT INFORMATION
  Report Type: 
  Country: US (occurrence: US)
  Receive Date: 20121119
  Receipt Date: 20121119
  Transmission Date: 20130627
  Serious: Yes (Other)
  Sender: FDA-Public Use
  Company Number: US-JNJFOC-20121103883

PATIENT
  Age: 20 None
  Sex: Male
  Weight: 57.61 kg

DRUGS (3)
  1. RISPERDAL [Suspect]
     Indication: BIPOLAR DISORDER
     Route: 048
     Dates: start: 2006, end: 201208
  2. RISPERDAL [Suspect]
     Indication: ANXIETY
     Route: 048
     Dates: start: 2006, end: 201208
  3. RISPERDAL [Suspect]
     Indication: BIPOLAR I DISORDER
     Route: 048
     Dates: start: 2006, end: 201208

REACTIONS (3)
  - Panic attack [Recovered/Resolved]
  - Torticollis [Not Recovered/Not Resolved]
  - Abnormal loss of weight [Recovered/Resolved]
